FAERS Safety Report 4637369-9 (Version None)
Quarter: 2005Q2

REPORT INFORMATION
  Report Type: 
  Country: None (occurrence: None)
  Receive Date: 20050328
  Receipt Date: 20041203
  Transmission Date: 20051028
  Serious: No
  Sender: FDA-Public Use
  Company Number: USA040876777

PATIENT
  Age: 14 Year
  Sex: Male
  Weight: 59 kg

DRUGS (4)
  1. STRATTERA [Suspect]
     Indication: ATTENTION DEFICIT/HYPERACTIVITY DISORDER
     Dosage: 80 MG IN THE EVENING
     Dates: start: 20040730, end: 20040813
  2. DESYREL [Concomitant]
  3. ADDERALL 10 [Concomitant]
  4. TENEX [Concomitant]

REACTIONS (10)
  - COUGH [None]
  - DRUG INEFFECTIVE [None]
  - DRUG INTERACTION [None]
  - DYSPNOEA [None]
  - FATIGUE [None]
  - RASH MACULO-PAPULAR [None]
  - RESPIRATORY TRACT INFECTION [None]
  - SOMNOLENCE [None]
  - UPPER RESPIRATORY TRACT CONGESTION [None]
  - WHEEZING [None]
